FAERS Safety Report 21318779 (Version 2)
Quarter: 2022Q4

REPORT INFORMATION
  Report Type: Spontaneous
  Country: US (occurrence: US)
  Receive Date: 20220911
  Receipt Date: 20221110
  Transmission Date: 20230113
  Serious: No
  Sender: FDA-Public Use
  Company Number: US-SA-SAC20220829002101

PATIENT
  Age: 45 Year
  Sex: Male

DRUGS (1)
  1. MYOZYME [Suspect]
     Active Substance: ALGLUCOSIDASE ALFA
     Route: 065

REACTIONS (1)
  - Drug specific antibody present [Unknown]

NARRATIVE: CASE EVENT DATE: 20220801
